FAERS Safety Report 9532724 (Version 2)
Quarter: 2013Q3

REPORT INFORMATION
  Report Type: Spontaneous
  Country: US (occurrence: US)
  Receive Date: 20130918
  Receipt Date: 20130918
  Transmission Date: 20140515
  Serious: No
  Sender: FDA-Public Use
  Company Number: US-PURDUE-USA-2011-0074098

PATIENT
  Sex: Female

DRUGS (1)
  1. BUTRANS [Suspect]
     Indication: PAIN
     Dosage: 10 MCG/HR, DAILY
     Route: 062
     Dates: start: 201108

REACTIONS (4)
  - Drug effect decreased [Not Recovered/Not Resolved]
  - Application site rash [Not Recovered/Not Resolved]
  - Product adhesion issue [Unknown]
  - Application site irritation [Unknown]
